FAERS Safety Report 14908290 (Version 1)
Quarter: 2018Q2

REPORT INFORMATION
  Report Type: Spontaneous
  Country: FR (occurrence: FR)
  Receive Date: 20180517
  Receipt Date: 20180517
  Transmission Date: 20180711
  Serious: Yes (Hospitalization)
  Sender: FDA-Public Use
  Company Number: FR-MERCK KGAA-2047990

PATIENT
  Sex: Female

DRUGS (1)
  1. NOVOTHYROX [Suspect]
     Active Substance: LEVOTHYROXINE SODIUM
     Indication: PRODUCT USED FOR UNKNOWN INDICATION

REACTIONS (17)
  - Irritability [None]
  - Dyspepsia [None]
  - Balance disorder [None]
  - Hot flush [None]
  - Gastrointestinal disorder [None]
  - Dizziness [None]
  - Alopecia [None]
  - Insomnia [None]
  - Syncope [None]
  - Psychiatric symptom [None]
  - Asocial behaviour [None]
  - Muscle spasms [None]
  - Headache [None]
  - Vomiting [None]
  - Myalgia [None]
  - Abdominal pain upper [None]
  - Arthralgia [None]
